FAERS Safety Report 6311890-X (Version None)
Quarter: 2009Q3

REPORT INFORMATION
  Report Type: 
  Country: None (occurrence: None)
  Receive Date: 20090817
  Receipt Date: 20090529
  Transmission Date: 20100115
  Serious: No
  Sender: FDA-Public Use
  Company Number: US-B.I. PHARMACEUTICALS,INC./RIDGEFIELD-2009-BP-09631BP

PATIENT

DRUGS (3)
  1. VIRAMUNE [Suspect]
  2. EPIVIR [Concomitant]
  3. ZERIT [Concomitant]

REACTIONS (3)
  - CD4 LYMPHOCYTES ABNORMAL [None]
  - STRESS [None]
  - T-LYMPHOCYTE COUNT INCREASED [None]
